FAERS Safety Report 8977652 (Version 1)
Quarter: 2012Q4

REPORT INFORMATION
  Report Type: 
  Country: IT (occurrence: IT)
  Receive Date: 20121220
  Receipt Date: 20121220
  Transmission Date: 20130627
  Serious: Yes (Other)
  Sender: FDA-Public Use
  Company Number: IT-GLAXOSMITHKLINE-B0853595A

PATIENT

DRUGS (6)
  1. VOTRIENT [Suspect]
     Indication: RENAL CELL CARCINOMA
     Dosage: 800MG per day
     Route: 065
     Dates: start: 20120614, end: 20121202
  2. TORVAST [Concomitant]
     Dosage: 40MG per day
     Route: 048
     Dates: start: 20120917, end: 20121210
  3. CARDURA [Concomitant]
     Dosage: 8MG per day
     Route: 048
     Dates: start: 20120917, end: 20121210
  4. KARVEA [Concomitant]
     Dosage: 300MG per day
     Route: 048
     Dates: start: 20120917, end: 20121210
  5. NORVASC [Concomitant]
     Dates: start: 20120917, end: 20121210
  6. ALLOPURINOL [Concomitant]
     Dosage: 300MG per day
     Route: 048
     Dates: start: 20120917, end: 20121210

REACTIONS (1)
  - Nephrotic syndrome [Recovering/Resolving]
